FAERS Safety Report 9377192 (Version 1)
Quarter: 2013Q3

REPORT INFORMATION
  Report Type: Spontaneous
  Country: US (occurrence: US)
  Receive Date: 20130701
  Receipt Date: 20130701
  Transmission Date: 20140515
  Serious: Yes (Disabling)
  Sender: FDA-Public Use
  Company Number: US-ROCHE-1242032

PATIENT
  Age: 45 Year
  Sex: Female
  Weight: 68.1 kg

DRUGS (25)
  1. VALIUM [Suspect]
     Indication: NEOPLASM MALIGNANT
     Route: 065
     Dates: start: 2004
  2. VALIUM [Suspect]
     Indication: HYPERTENSION
  3. VALIUM [Suspect]
     Indication: OFF LABEL USE
  4. VALIUM [Suspect]
     Indication: STRESS
  5. EFFEXOR [Suspect]
     Indication: DEPRESSION
     Route: 065
     Dates: start: 1998
  6. EFFEXOR [Suspect]
     Indication: OBSESSIVE-COMPULSIVE DISORDER
  7. EFFEXOR [Suspect]
     Indication: BIPOLAR DISORDER
  8. EFFEXOR [Suspect]
     Indication: ANXIETY
  9. LYRICA [Suspect]
     Indication: FIBROMYALGIA
     Route: 065
     Dates: start: 200902
  10. LYRICA [Suspect]
     Route: 065
  11. LYRICA [Suspect]
     Route: 065
  12. LYRICA [Suspect]
     Dosage: 300 MG AT NIGHT AND 150 MG IN MORNING
     Route: 065
  13. LYRICA [Suspect]
     Route: 065
  14. PROZAC [Suspect]
     Indication: DEPRESSION
     Route: 065
     Dates: start: 1998
  15. PROZAC [Suspect]
     Indication: OBSESSIVE-COMPULSIVE DISORDER
  16. PROZAC [Suspect]
     Indication: BIPOLAR DISORDER
  17. PROZAC [Suspect]
     Indication: ANXIETY
  18. PAXIL [Suspect]
     Indication: DEPRESSION
     Route: 065
     Dates: start: 1998
  19. PAXIL [Suspect]
     Indication: OBSESSIVE-COMPULSIVE DISORDER
  20. PAXIL [Suspect]
     Indication: BIPOLAR DISORDER
  21. PAXIL [Suspect]
     Indication: ANXIETY
  22. EFFEXOR XR [Suspect]
     Indication: DEPRESSION
     Route: 065
     Dates: start: 1998
  23. EFFEXOR XR [Suspect]
     Indication: OBSESSIVE-COMPULSIVE DISORDER
  24. EFFEXOR XR [Suspect]
     Indication: BIPOLAR DISORDER
  25. EFFEXOR XR [Suspect]
     Indication: ANXIETY

REACTIONS (6)
  - Dizziness [Recovered/Resolved]
  - Somnolence [Recovered/Resolved]
  - Euphoric mood [Unknown]
  - Migraine [Unknown]
  - Road traffic accident [Unknown]
  - Intervertebral disc protrusion [Unknown]
